FAERS Safety Report 8013104-1 (Version None)
Quarter: 2011Q4

REPORT INFORMATION
  Report Type: 
  Country: None (occurrence: None)
  Receive Date: 20111229
  Receipt Date: 20111219
  Transmission Date: 20120403
  Serious: Yes (Hospitalization, Other)
  Sender: FDA-Public Use
  Company Number: FR-PFIZER INC-2011314118

PATIENT
  Age: 46 Year
  Sex: Male

DRUGS (2)
  1. PANTOPRAZOLE [Suspect]
     Dosage: UNK
     Route: 048
     Dates: end: 20101203
  2. CEFTRIAXONE [Suspect]
     Indication: VIRAL INFECTION
     Dosage: UNK
     Route: 042
     Dates: start: 20101202, end: 20101203

REACTIONS (1)
  - PANCYTOPENIA [None]
